FAERS Safety Report 7783623-1 (Version None)
Quarter: 2011Q3

REPORT INFORMATION
  Report Type: 
  Country: None (occurrence: None)
  Receive Date: 20110928
  Receipt Date: 20110416
  Transmission Date: 20111222
  Serious: No
  Sender: FDA-Public Use
  Company Number: US-MYLANLABS-2011S1008079

PATIENT
  Age: 78 Year
  Sex: Male
  Weight: 68.95 kg

DRUGS (1)
  1. NITRGLYCERIN TRANSDERMAL SYSTEM [Suspect]
     Indication: ANGINA PECTORIS
     Dosage: CHANGED QDAY.
     Route: 062
     Dates: start: 20100101

REACTIONS (2)
  - OEDEMA PERIPHERAL [None]
  - MEDICATION ERROR [None]
